FAERS Safety Report 9061453 (Version 2)
Quarter: 2013Q4

REPORT INFORMATION
  Report Type: Report from Study
  Country: JP (occurrence: JP)
  Receive Date: 20130204
  Receipt Date: 20131216
  Transmission Date: 20140711
  Serious: Yes (Hospitalization)
  Sender: FDA-Public Use
  Company Number: JP-ELI_LILLY_AND_COMPANY-JP201208006573

PATIENT
  Age: 82 Year
  Sex: Female

DRUGS (1)
  1. TERIPARATIDE [Suspect]
     Indication: BONE DENSITY DECREASED
     Dosage: UNK, EACH MORNING
     Route: 058
     Dates: start: 20120807

REACTIONS (6)
  - Lower limb fracture [Unknown]
  - Injection site bruising [Unknown]
  - Erythema [Unknown]
  - Somnolence [Unknown]
  - Muscle spasms [Unknown]
  - Nausea [Recovered/Resolved]
